FAERS Safety Report 5001692-9 (Version None)
Quarter: 2006Q2

REPORT INFORMATION
  Report Type: 
  Country: None (occurrence: None)
  Receive Date: 20060512
  Receipt Date: 20060512
  Transmission Date: 20061013
  Serious: Yes (Hospitalization, Other)
  Sender: FDA-Public Use
  Company Number: None

PATIENT
  Sex: Male
  Weight: 85.7 kg

DRUGS (6)
  1. CYCLOPHOSPHAMIDE [Suspect]
     Indication: DIFFUSE LARGE B-CELL LYMPHOMA
     Dosage: 795 MG
     Dates: start: 20060429
  2. DOXORUBICIN HCL [Suspect]
     Dosage: 84MG
     Dates: start: 20060428
  3. ETOPOSIDE [Suspect]
     Dosage: 424 MG
     Dates: start: 20060428
  4. G-CSF (FILGRASTIM, AMGEN) [Suspect]
     Dosage: 6 MG
     Dates: start: 20060501
  5. PREDNISONE TAB [Suspect]
     Dosage: 650 MG
     Dates: start: 20060429
  6. VINCRISTINE SULFATE [Suspect]
     Dosage: 3.4 MG
     Dates: start: 20060428

REACTIONS (5)
  - HAEMOGLOBIN DECREASED [None]
  - HAEMOLYSIS [None]
  - NEUTROPHIL COUNT DECREASED [None]
  - PLATELET COUNT DECREASED [None]
  - WHITE BLOOD CELL COUNT DECREASED [None]
